FAERS Safety Report 20208123 (Version 2)
Quarter: 2021Q4

REPORT INFORMATION
  Report Type: Spontaneous
  Country: AR (occurrence: AR)
  Receive Date: 20211220
  Receipt Date: 20211223
  Transmission Date: 20220304
  Serious: Yes (Hospitalization, Other)
  Sender: FDA-Public Use
  Company Number: AR-GLAXOSMITHKLINE-AR2021255362

PATIENT
  Sex: Female

DRUGS (1)
  1. ROPINIROLE HYDROCHLORIDE [Suspect]
     Active Substance: ROPINIROLE HYDROCHLORIDE
     Indication: Parkinson^s disease
     Dosage: 2 MG, 4, 6 AND THEN 2 PILLS OF 8 MG
     Dates: start: 2008, end: 20211213

REACTIONS (12)
  - Rib fracture [Unknown]
  - Skin cancer [Unknown]
  - Altered state of consciousness [Unknown]
  - Accident [Unknown]
  - Dyskinesia [Unknown]
  - Mydriasis [Unknown]
  - Amnesia [Unknown]
  - Dysarthria [Unknown]
  - Back pain [Unknown]
  - Pain [Unknown]
  - Confusional state [Unknown]
  - Overdose [Unknown]

NARRATIVE: CASE EVENT DATE: 20210101
